FAERS Safety Report 14875719 (Version 1)
Quarter: 2018Q2

REPORT INFORMATION
  Report Type: Spontaneous
  Country: US (occurrence: US)
  Receive Date: 20180510
  Receipt Date: 20180510
  Transmission Date: 20180711
  Serious: Yes (Other)
  Sender: FDA-Public Use
  Company Number: US-GLAXOSMITHKLINE-US2018082741

PATIENT
  Sex: Male

DRUGS (6)
  1. TOPAMAX [Suspect]
     Active Substance: TOPIRAMATE
     Indication: EPILEPSY
     Dates: end: 20180410
  2. BRIVIACT [Concomitant]
     Active Substance: BRIVARACETAM
  3. VIMPAT [Concomitant]
     Active Substance: LACOSAMIDE
  4. LAMICTAL XR [Suspect]
     Active Substance: LAMOTRIGINE
     Indication: EPILEPSY
     Dosage: UNK, BID
     Route: 048
     Dates: start: 2009
  5. LAMICTAL XR [Suspect]
     Active Substance: LAMOTRIGINE
     Dosage: UNK, BID
     Route: 048
     Dates: start: 2009
  6. GABAPENTIN. [Concomitant]
     Active Substance: GABAPENTIN

REACTIONS (5)
  - Product availability issue [Unknown]
  - Drug dispensing error [Unknown]
  - Seizure [Unknown]
  - Nephrolithiasis [Unknown]
  - Overdose [Unknown]
